FAERS Safety Report 18345885 (Version 1)
Quarter: 2020Q4

REPORT INFORMATION
  Report Type: Spontaneous
  Country: AT (occurrence: AT)
  Receive Date: 20201005
  Receipt Date: 20201005
  Transmission Date: 20210114
  Serious: Yes (Other)
  Sender: FDA-Public Use
  Company Number: AT-JNJFOC-20200943941

PATIENT
  Age: 28 Year
  Sex: Male

DRUGS (6)
  1. POLAMIDON [Concomitant]
     Active Substance: LEVOMETHADONE
     Dates: start: 2019
  2. IBUPROFEN. [Concomitant]
     Active Substance: IBUPROFEN
  3. PRAXITEN [Concomitant]
     Active Substance: OXAZEPAM
     Dates: start: 2019
  4. XEPLION [Suspect]
     Active Substance: PALIPERIDONE PALMITATE
  5. XEPLION [Suspect]
     Active Substance: PALIPERIDONE PALMITATE
  6. XEPLION [Suspect]
     Active Substance: PALIPERIDONE PALMITATE
     Indication: SCHIZOPHRENIA
     Route: 030
     Dates: start: 201903, end: 20200401

REACTIONS (4)
  - Akathisia [Not Recovered/Not Resolved]
  - Drug abuse [Not Recovered/Not Resolved]
  - Sleep disorder [Not Recovered/Not Resolved]
  - Drug level changed [Unknown]

NARRATIVE: CASE EVENT DATE: 201912
